FAERS Safety Report 26179341 (Version 2)
Quarter: 2025Q4

REPORT INFORMATION
  Report Type: Spontaneous
  Country: JP (occurrence: JP)
  Receive Date: 20251219
  Receipt Date: 20251224
  Transmission Date: 20260118
  Serious: Yes (Hospitalization, Other)
  Sender: BAYER HEALTHCARE PHARMACEUTICALS INC.
  Company Number: JP-BAYER-2025A166751

PATIENT
  Age: 71 Year
  Sex: Female
  Weight: 57 kg

DRUGS (8)
  1. KERENDIA [Suspect]
     Active Substance: FINERENONE
     Indication: Type 2 diabetes mellitus
     Dosage: 10 MG, QD
     Dates: start: 20250916, end: 20251127
  2. KERENDIA [Suspect]
     Active Substance: FINERENONE
     Indication: Chronic kidney disease
  3. ENTRESTO [Suspect]
     Active Substance: SACUBITRIL\VALSARTAN
     Indication: Product used for unknown indication
     Dosage: UNK
     Dates: start: 20250818
  4. ENTRESTO [Suspect]
     Active Substance: SACUBITRIL\VALSARTAN
     Indication: Product used for unknown indication
     Dosage: 100 MG, QD
  5. LOKELMA [Concomitant]
     Active Substance: SODIUM ZIRCONIUM CYCLOSILICATE
     Dosage: 5 G, QD
  6. SODIUM BICARBONATE [Concomitant]
     Active Substance: SODIUM BICARBONATE
     Dosage: 1000 MG, BID
  7. INSULIN ASPART [Concomitant]
     Active Substance: INSULIN ASPART
     Dosage: MORNING: 2 UNITS, AFTERNOON: 3 UNITS, EVENING: 4 UNITS
  8. TRESIBA [Concomitant]
     Active Substance: INSULIN DEGLUDEC
     Dosage: EVENING: 3 UNITS

REACTIONS (28)
  - Hyperkalaemia [Recovered/Resolved]
  - Sinus bradycardia [Recovered/Resolved]
  - Nephropathy toxic [Recovered/Resolved]
  - Renal atrophy [None]
  - Arteriosclerosis coronary artery [None]
  - Pulmonary fibrosis [None]
  - Renal artery stenosis [None]
  - Mitral valve incompetence [None]
  - Aortic valve incompetence [None]
  - Tricuspid valve incompetence [None]
  - Pulmonary valve incompetence [None]
  - Gastritis erosive [None]
  - Duodenal ulcer [None]
  - Malaise [Recovering/Resolving]
  - Hypertension [None]
  - Large intestine polyp [None]
  - Haemorrhoids [None]
  - Hypoglycaemia [None]
  - Faecal occult blood [None]
  - Arteriosclerosis [None]
  - Adrenal mass [None]
  - Anaemia [None]
  - Cardiomegaly [None]
  - Breast calcifications [None]
  - Renal cyst [None]
  - Chronic gastritis [None]
  - Duodenitis [None]
  - Diverticulum intestinal [None]

NARRATIVE: CASE EVENT DATE: 20251127
